FAERS Safety Report 17204006 (Version 1)
Quarter: 2019Q4

REPORT INFORMATION
  Report Type: Spontaneous
  Country: CN (occurrence: CN)
  Receive Date: 20191226
  Receipt Date: 20191226
  Transmission Date: 20200122
  Serious: Yes (Other)
  Sender: FDA-Public Use
  Company Number: CN-ENDO PHARMACEUTICALS INC-2019-111042

PATIENT
  Sex: Male

DRUGS (2)
  1. TRICLABENDAZOLE [Suspect]
     Active Substance: TRICLABENDAZOLE
     Indication: PRODUCT USED FOR UNKNOWN INDICATION
     Dosage: 2 G FOR FOUR DAYS, DAILY
     Route: 065
  2. PRAZIQUANTEL. [Suspect]
     Active Substance: PRAZIQUANTEL
     Indication: PRODUCT USED FOR UNKNOWN INDICATION
     Dosage: 1 G FOR FOUR DAYS, DAILY
     Route: 065

REACTIONS (2)
  - Retinopathy [Recovering/Resolving]
  - Overdose [Recovered/Resolved]
